FAERS Safety Report 24226275 (Version 1)
Quarter: 2024Q3

REPORT INFORMATION
  Report Type: Spontaneous
  Country: US (occurrence: US)
  Receive Date: 20240820
  Receipt Date: 20240820
  Transmission Date: 20241017
  Serious: No
  Sender: BAUSCH AND LOMB
  Company Number: US-BAUSCHBL-2024BNL031515

PATIENT
  Age: 88 Year
  Sex: Male

DRUGS (3)
  1. LUMIFY [Suspect]
     Active Substance: BRIMONIDINE TARTRATE
     Indication: Eye pruritus
     Route: 047
     Dates: start: 20240731, end: 202408
  2. LUMIFY [Suspect]
     Active Substance: BRIMONIDINE TARTRATE
     Indication: Dry eye
  3. LUMIFY [Suspect]
     Active Substance: BRIMONIDINE TARTRATE
     Indication: Product use in unapproved indication

REACTIONS (2)
  - Eye irritation [Recovered/Resolved]
  - Product use in unapproved indication [Unknown]

NARRATIVE: CASE EVENT DATE: 20240731
